FAERS Safety Report 8560578-3 (Version None)
Quarter: 2012Q3

REPORT INFORMATION
  Report Type: 
  Country: None (occurrence: None)
  Receive Date: 20120723
  Receipt Date: 20120716
  Transmission Date: 20120928
  Serious: Yes (Other)
  Sender: FDA-Public Use
  Company Number: 1280965

PATIENT
  Age: 42 Year
  Sex: Female

DRUGS (11)
  1. DOCETAXEL [Suspect]
     Indication: BREAST CANCER
     Dosage: 167 MG FOR 1 H, 4 CYCLES, INTRAVENOUS DRIP
     Route: 041
  2. RANITIDINE [Suspect]
     Indication: PREMEDICATION
     Dosage: 50 MG
  3. (BISULEPIN) [Suspect]
     Indication: PREMEDICATION
     Dosage: 2 MG
  4. CYCLOPHOSPHAMIDE [Suspect]
     Indication: BREAST CANCER
     Dosage: 600 MG/M^2, INTRAVENOUS DRIP
     Route: 041
  5. (GOSERELIN) [Concomitant]
  6. TAMOXIFEN CITRATE [Concomitant]
  7. DEXAMETHASONE [Suspect]
     Indication: PREMEDICATION
     Dosage: 8 MG
  8. PACLITAXEL [Suspect]
     Indication: NEOPLASM MALIGNANT
     Dosage: 150 MG FOR 1H, 12 WEEKLY CYCLES, INTRAVENOUS DRIP
     Route: 041
  9. ADRIAMYCIN PFS [Concomitant]
  10. (THERAPEUTIC RADIOPHARMACEUTICALS) [Concomitant]
  11. ONDANSETRON [Concomitant]

REACTIONS (9)
  - ANXIETY [None]
  - HYPOAESTHESIA [None]
  - HEADACHE [None]
  - DISTURBANCE IN ATTENTION [None]
  - SOMATOFORM DISORDER [None]
  - HALLUCINATIONS, MIXED [None]
  - SUICIDAL IDEATION [None]
  - DYSPHEMIA [None]
  - PSYCHOTIC DISORDER [None]
